FAERS Safety Report 8947807 (Version 1)
Quarter: 2012Q4

REPORT INFORMATION
  Report Type: Spontaneous
  Country: US (occurrence: None)
  Receive Date: 20121127
  Receipt Date: 20121127
  Transmission Date: 20130627
  Serious: Yes (Death)
  Sender: FDA-Public Use
  Company Number: 2012-19608

PATIENT
  Age: 11 Year
  Sex: Male

DRUGS (6)
  1. PANTOPRAZOLE SODIUM [Suspect]
     Indication: SEPTICEMIA GRAM-NEGATIVE
  2. CIPROFLOXACIN HYDROCHLORIDE [Suspect]
     Indication: SEPTICEMIA GRAM-NEGATIVE
  3. GENTAMICIN SULFATE [Suspect]
     Indication: SEPTICEMIA GRAM-NEGATIVE
  4. CEFTAZIDIME [Suspect]
     Indication: SEPTICEMIA GRAM-NEGATIVE
  5. PIPERACILINA/TAZOBACTAM TEVA [Suspect]
     Indication: SEPTICEMIA GRAM-NEGATIVE
  6. VANCOMYCIN (VANCOMYCIN) [Concomitant]

REACTIONS (2)
  - Bacterial sepsis [None]
  - Drug ineffective [None]
